FAERS Safety Report 6637275-4 (Version None)
Quarter: 2010Q1

REPORT INFORMATION
  Report Type: 
  Country: None (occurrence: None)
  Receive Date: 20100316
  Receipt Date: 20100208
  Transmission Date: 20100710
  Serious: No
  Sender: FDA-Public Use
  Company Number: US-ABBOTT-10P-163-0625548-00

PATIENT
  Sex: Male
  Weight: 68.1 kg

DRUGS (2)
  1. TRILIPIX [Suspect]
     Indication: BLOOD TRIGLYCERIDES INCREASED
     Dates: start: 20100204, end: 20100205
  2. DIOVAN [Concomitant]
     Indication: HYPERTENSION
     Dates: start: 20100204, end: 20100204

REACTIONS (10)
  - ABDOMINAL DISCOMFORT [None]
  - BACK PAIN [None]
  - CHILLS [None]
  - CHROMATURIA [None]
  - DIARRHOEA [None]
  - DIZZINESS [None]
  - MYALGIA [None]
  - NAUSEA [None]
  - PAIN IN EXTREMITY [None]
  - PYREXIA [None]
